FAERS Safety Report 18904863 (Version 1)
Quarter: 2021Q1

REPORT INFORMATION
  Report Type: Report from Study
  Country: CO (occurrence: CO)
  Receive Date: 20210217
  Receipt Date: 20210217
  Transmission Date: 20210420
  Serious: Yes (Other)
  Sender: FDA-Public Use
  Company Number: NVSC2021CO034106

PATIENT
  Sex: Female
  Weight: 56 kg

DRUGS (4)
  1. FUROSEMIDE. [Concomitant]
     Active Substance: FUROSEMIDE
     Indication: FLUID RETENTION
     Dosage: 40 MG, QD (STARTED 1 YEAR AGO)
     Route: 048
  2. WARFARIN [Concomitant]
     Active Substance: WARFARIN
     Indication: ANTICOAGULANT THERAPY
     Dosage: 5 MG, QD (OVER ONE YEAR AGO)
     Route: 048
  3. JAKAVI [Suspect]
     Active Substance: RUXOLITINIB
     Indication: MYELOFIBROSIS
     Dosage: 10 MG, Q12H (STARTED 2 YEARS AGO)
     Route: 048
  4. LOSARTAN. [Suspect]
     Active Substance: LOSARTAN
     Indication: HYPERTENSION
     Dosage: 50 MG, Q12H (STARTED 1 YEAR AGO)
     Route: 048

REACTIONS (2)
  - Iron overload [Unknown]
  - Myelodysplastic syndrome [Unknown]
